FAERS Safety Report 7183980-3 (Version None)
Quarter: 2010Q4

REPORT INFORMATION
  Report Type: 
  Country: None (occurrence: None)
  Receive Date: 20101222
  Receipt Date: 20101215
  Transmission Date: 20110411
  Serious: Yes (Hospitalization)
  Sender: FDA-Public Use
  Company Number: ES-ROCHE-748821

PATIENT
  Sex: Female

DRUGS (7)
  1. BEVACIZUMAB [Suspect]
     Dosage: DOSE LEVEL: 15 MG/KG, FORM: VIALS, LAST DOSE PRIOR TO SAE: 21 NOVEMBER 2010, THERAPY DELAYED.
     Route: 042
     Dates: start: 20100914
  2. TRASTUZUMAB [Suspect]
     Dosage: LOADING DOSE.
     Route: 042
     Dates: start: 20100914
  3. TRASTUZUMAB [Suspect]
     Dosage: MAINTAINANCE DOSE, TOTAL DOSE: 420 MG, FORM: VIALS, THERAPY DELAYED.
     Route: 042
     Dates: start: 20101005
  4. DOCETAXEL [Suspect]
     Dosage: DOSE LEVEL: 75 MG/M2, FORM: VIALS.
     Route: 042
     Dates: start: 20100914
  5. DOCETAXEL [Suspect]
     Dosage: LAST DOSE PRIOR TO SAE: 23 NOVEMBER 2010, DOSE LEVEL: 60 MG/M2, THERAPY DEALYED.
     Route: 042
  6. CARBOPLATIN [Suspect]
     Dosage: DOSE LEVEL: 6 AUC, FORM: VIALS.
     Route: 042
     Dates: start: 20100914
  7. CARBOPLATIN [Suspect]
     Dosage: LAST DOSE PRIOR TO SAE: 23 NOVEMBER 2010, DOSE LEVEL: 05 AUC, THERAPY DEALYED.
     Route: 042

REACTIONS (1)
  - INTERSTITIAL LUNG DISEASE [None]
